FAERS Safety Report 9350724 (Version 2)
Quarter: 2013Q3

REPORT INFORMATION
  Report Type: Report from Study
  Country: AR (occurrence: AR)
  Receive Date: 20130617
  Receipt Date: 20130705
  Transmission Date: 20140515
  Serious: Yes (Other)
  Sender: FDA-Public Use
  Company Number: PHHY2013AR061256

PATIENT
  Age: 64 Year
  Sex: Male

DRUGS (2)
  1. GILENYA [Suspect]
     Indication: MULTIPLE SCLEROSIS
     Dosage: 1 DF, QD
     Route: 048
     Dates: start: 201111
  2. INSULIN [Concomitant]
     Indication: DIABETES MELLITUS

REACTIONS (4)
  - Dysarthria [Not Recovered/Not Resolved]
  - Ataxia [Not Recovered/Not Resolved]
  - Demyelination [Not Recovered/Not Resolved]
  - Incontinence [Not Recovered/Not Resolved]
